FAERS Safety Report 11629276 (Version 3)
Quarter: 2015Q4

REPORT INFORMATION
  Report Type: Report from Study
  Country: US (occurrence: US)
  Receive Date: 20151014
  Receipt Date: 20151214
  Transmission Date: 20160304
  Serious: Yes (Hospitalization, Other)
  Sender: FDA-Public Use
  Company Number: US-ACTELION-A-NJ2015-125348

PATIENT
  Age: 64 Year
  Sex: Female

DRUGS (1)
  1. MACITENTAN [Suspect]
     Active Substance: MACITENTAN
     Indication: PULMONARY ARTERIAL HYPERTENSION
     Dosage: 10 MG, UNK
     Route: 048
     Dates: start: 20150318

REACTIONS (11)
  - Head injury [Unknown]
  - Shock [Unknown]
  - Blood pressure decreased [Unknown]
  - Suture insertion [Unknown]
  - Fall [Unknown]
  - Respiratory arrest [Unknown]
  - Anaemia [Unknown]
  - Cyanosis [Unknown]
  - Decubitus ulcer [Unknown]
  - Loss of consciousness [Unknown]
  - Syncope [Unknown]
